FAERS Safety Report 14624151 (Version 1)
Quarter: 2018Q1

REPORT INFORMATION
  Report Type: Spontaneous
  Country: SI (occurrence: SI)
  Receive Date: 20180312
  Receipt Date: 20180312
  Transmission Date: 20180509
  Serious: Yes (Other)
  Sender: FDA-Public Use
  Company Number: SI-BEH-2018088593

PATIENT
  Age: 52 Year
  Sex: Male

DRUGS (11)
  1. NEBILET [Concomitant]
     Active Substance: NEBIVOLOL
     Dosage: PHARM DOSE FORM: UNSPECIFIED
     Route: 065
  2. PROCORALAN [Concomitant]
     Active Substance: IVABRADINE
     Dosage: PHARM DOSE FORM: UNSPECIFIED
     Route: 065
  3. PALEXIA [Concomitant]
     Active Substance: TAPENTADOL HYDROCHLORIDE
     Dosage: PHARM DOSE FORM: UNSPECIFIED
     Route: 065
  4. PRIVIGEN [Suspect]
     Active Substance: HUMAN IMMUNOGLOBULIN G
     Indication: PNEUMONIA
     Dosage: 50 G, UNK, 1 DOSE (VIAL)
     Route: 042
     Dates: start: 20171211, end: 20171211
  5. ANALGIN                            /06276703/ [Concomitant]
     Dosage: PHARM DOSE FORM: TABLETS
     Route: 065
  6. NOLPAZA [Concomitant]
     Active Substance: PANTOPRAZOLE SODIUM
     Dosage: PHARM DOSE FORM: UNSPECIFIED
     Route: 065
  7. PRENESSA [Concomitant]
     Active Substance: PERINDOPRIL
     Dosage: PHARM DOSE FORM: UNSPECIFIED
     Route: 065
  8. KALINOR /00279301/ [Concomitant]
     Active Substance: CITRIC ACID MONOHYDRATE\POTASSIUM BICARBONATE\POTASSIUM CITRATE
     Dosage: PHARM DOSE FORM: UNSPECIFIED
     Route: 065
  9. ASPIRIN. [Concomitant]
     Active Substance: ASPIRIN
     Route: 065
  10. MAXIPIME [Concomitant]
     Active Substance: CEFEPIME HYDROCHLORIDE
     Dosage: PHARM DOSE FORM: VIALS, DRY
     Route: 065
  11. CRESTOR [Concomitant]
     Active Substance: ROSUVASTATIN CALCIUM
     Dosage: PHARM DOSE FORM: COATED TABLETS, FILM
     Route: 065

REACTIONS (1)
  - Infusion related reaction [Unknown]

NARRATIVE: CASE EVENT DATE: 20171211
